FAERS Safety Report 26077225 (Version 1)
Quarter: 2025Q4

REPORT INFORMATION
  Report Type: Spontaneous
  Country: EG (occurrence: EG)
  Receive Date: 20251121
  Receipt Date: 20251121
  Transmission Date: 20260118
  Serious: Yes (Other)
  Sender: NOVO NORDISK
  Company Number: EG-NOVOPROD-1367675

PATIENT
  Age: 294 Month
  Sex: Female
  Weight: 57 kg

DRUGS (4)
  1. TRESIBA [Suspect]
     Active Substance: INSULIN DEGLUDEC
     Indication: Type 1 diabetes mellitus
     Dosage: 20 IU, QD
     Route: 058
     Dates: start: 202411
  2. NOVORAPID [Suspect]
     Active Substance: INSULIN ASPART
     Indication: Type 1 diabetes mellitus
     Dosage: 75 IU, QD
     Route: 058
     Dates: start: 202411
  3. NOVORAPID [Suspect]
     Active Substance: INSULIN ASPART
     Dosage: 95 IU, QD (30IU +35 IU +30 IU)
     Route: 058
  4. FOLIC ACID [Concomitant]
     Active Substance: FOLIC ACID
     Indication: Vitamin supplementation
     Dosage: ONCE
     Route: 048

REACTIONS (3)
  - Abortion spontaneous [Unknown]
  - Hyperglycaemia [Not Recovered/Not Resolved]
  - Maternal exposure during pregnancy [Unknown]

NARRATIVE: CASE EVENT DATE: 20241223
